FAERS Safety Report 10499820 (Version 1)
Quarter: 2014Q4

REPORT INFORMATION
  Report Type: Spontaneous
  Country: US (occurrence: US)
  Receive Date: 20141006
  Receipt Date: 20141006
  Transmission Date: 20150528
  Serious: No
  Sender: FDA-Public Use
  Company Number: US-AMGEN INC.-USASP2014061666

PATIENT
  Age: 79 Year
  Sex: Female

DRUGS (1)
  1. PROLIA [Suspect]
     Active Substance: DENOSUMAB
     Indication: OSTEOPOROSIS POSTMENOPAUSAL
     Dosage: UNK
     Route: 065

REACTIONS (8)
  - Plantar fasciitis [Unknown]
  - Pruritus [Unknown]
  - Pain in extremity [Unknown]
  - Urticaria [Unknown]
  - Bone pain [Unknown]
  - Local swelling [Unknown]
  - Back disorder [Unknown]
  - Scab [Unknown]

NARRATIVE: CASE EVENT DATE: 2014
